FAERS Safety Report 7090185-3 (Version None)
Quarter: 2010Q4

REPORT INFORMATION
  Report Type: 
  Country: None (occurrence: None)
  Receive Date: 20101104
  Receipt Date: 20101104
  Transmission Date: 20110411
  Serious: Yes (Life-Threatening)
  Sender: FDA-Public Use
  Company Number: None

PATIENT
  Sex: Male
  Weight: 109.1 kg

DRUGS (2)
  1. FLEBOGAMMA [Suspect]
     Indication: GUILLAIN-BARRE SYNDROME
     Dosage: FLEGOGAMMA FLEBOGAMMA 5% 45GM/900ML DAILY TIMES 5 DAY IV
     Route: 042
     Dates: start: 20101011
  2. FLEBOGAMMA [Suspect]

REACTIONS (3)
  - DYSPNOEA [None]
  - OXYGEN SATURATION DECREASED [None]
  - WHEEZING [None]
